FAERS Safety Report 7750057-5 (Version None)
Quarter: 2011Q3

REPORT INFORMATION
  Report Type: 
  Country: None (occurrence: None)
  Receive Date: 20110912
  Receipt Date: 20110901
  Transmission Date: 20111222
  Serious: Yes (Other)
  Sender: FDA-Public Use
  Company Number: 2011SP030032

PATIENT
  Age: 60 Year
  Sex: Male
  Weight: 75 kg

DRUGS (4)
  1. LITHIUM CARBONATE [Suspect]
     Indication: BIPOLAR DISORDER
     Dosage: 3 DF;TID;PO
     Route: 048
     Dates: start: 20101101
  2. TRIMIPRAMINE MALEATE [Suspect]
     Indication: BIPOLAR DISORDER
     Dosage: 100 MG;QD;PO
     Route: 048
     Dates: start: 20101101
  3. PAROXETINE HCL [Suspect]
     Indication: BIPOLAR DISORDER
     Dosage: PO
     Route: 048
  4. SYCREST (ASENAPINE /05706901/) [Suspect]
     Indication: BIPOLAR DISORDER
     Dosage: 5 MG;ONCE;PO
     Route: 048
     Dates: start: 20110501, end: 20110501

REACTIONS (7)
  - UNDERDOSE [None]
  - RESTLESSNESS [None]
  - INAPPROPRIATE SCHEDULE OF DRUG ADMINISTRATION [None]
  - DRUG INTERACTION [None]
  - IMPULSIVE BEHAVIOUR [None]
  - FATIGUE [None]
  - DISORIENTATION [None]
